FAERS Safety Report 5951595-8 (Version None)
Quarter: 2008Q4

REPORT INFORMATION
  Report Type: 
  Country: None (occurrence: None)
  Receive Date: 20081113
  Receipt Date: 20081105
  Transmission Date: 20090506
  Serious: Yes (Other)
  Sender: FDA-Public Use
  Company Number: PHHY2008CA27399

PATIENT
  Sex: Female

DRUGS (1)
  1. SLOW-K [Suspect]
     Dosage: UNK
     Dates: start: 20081103

REACTIONS (1)
  - BLOOD GLUCOSE INCREASED [None]
